FAERS Safety Report 25385584 (Version 1)
Quarter: 2025Q2

REPORT INFORMATION
  Report Type: Spontaneous
  Country: GB (occurrence: None)
  Receive Date: 20250601
  Receipt Date: 20250601
  Transmission Date: 20250717
  Serious: Yes (Disabling)
  Sender: FDA-CTU
  Company Number: None

PATIENT
  Age: 31 Year
  Sex: Male
  Weight: 70 kg

DRUGS (1)
  1. SERTRALINE [Suspect]
     Active Substance: SERTRALINE HYDROCHLORIDE
     Indication: Adjustment disorder with depressed mood
     Dates: start: 20211101, end: 20230619

REACTIONS (4)
  - Anorgasmia [None]
  - Genital paraesthesia [None]
  - Emotional poverty [None]
  - Loss of libido [None]

NARRATIVE: CASE EVENT DATE: 20230619
